FAERS Safety Report 16163716 (Version 2)
Quarter: 2019Q2

REPORT INFORMATION
  Report Type: Spontaneous
  Country: US (occurrence: US)
  Receive Date: 20190405
  Receipt Date: 20190626
  Transmission Date: 20190711
  Serious: Yes (Death, Hospitalization)
  Sender: FDA-Public Use
  Company Number: US-VIFOR (INTERNATIONAL) INC.-VIT-2019-03136

PATIENT
  Age: 77 Year
  Sex: Female
  Weight: 92.62 kg

DRUGS (5)
  1. VELTASSA [Suspect]
     Active Substance: PATIROMER
     Dates: start: 201702, end: 201703
  2. VELTASSA [Suspect]
     Active Substance: PATIROMER
     Dates: start: 20170519, end: 201708
  3. VELTASSA [Suspect]
     Active Substance: PATIROMER
     Indication: HYPERKALAEMIA
     Route: 048
  4. VELTASSA [Suspect]
     Active Substance: PATIROMER
     Dates: start: 201810, end: 20190120
  5. VELTASSA [Suspect]
     Active Substance: PATIROMER
     Dates: start: 20170421, end: 2017

REACTIONS (3)
  - Renal failure [Fatal]
  - Dyspnoea [Fatal]
  - Cardiac failure [Fatal]

NARRATIVE: CASE EVENT DATE: 201901
